FAERS Safety Report 15169046 (Version 2)
Quarter: 2018Q3

REPORT INFORMATION
  Report Type: Report from Study
  Country: GB (occurrence: GB)
  Receive Date: 20180720
  Receipt Date: 20180910
  Transmission Date: 20181010
  Serious: Yes (Hospitalization)
  Sender: FDA-Public Use
  Company Number: GB-ROCHE-2156429

PATIENT
  Sex: Female

DRUGS (1)
  1. RITUXIMAB. [Suspect]
     Active Substance: RITUXIMAB
     Indication: RHEUMATOID ARTHRITIS
     Route: 042
     Dates: start: 20101102

REACTIONS (4)
  - Infection [Unknown]
  - Pulmonary fibrosis [Unknown]
  - Pulmonary oedema [Unknown]
  - Fibrosis [Unknown]

NARRATIVE: CASE EVENT DATE: 20180207
